FAERS Safety Report 17572468 (Version 2)
Quarter: 2020Q2

REPORT INFORMATION
  Report Type: Report from Study
  Country: BE (occurrence: BE)
  Receive Date: 20200323
  Receipt Date: 20200420
  Transmission Date: 20200713
  Serious: Yes (Other)
  Sender: FDA-Public Use
  Company Number: BE-TAKEDA-2020TUS014296

PATIENT
  Age: 46 Year
  Sex: Male

DRUGS (8)
  1. ADALIMUMAB [Suspect]
     Active Substance: ADALIMUMAB
     Indication: CROHN^S DISEASE
     Dosage: 40 MILLIGRAM
     Route: 058
     Dates: start: 20040727, end: 20070320
  2. METHOTREXATE. [Concomitant]
     Active Substance: METHOTREXATE
     Indication: ANKYLOSING SPONDYLITIS
     Dosage: 20 MILLIGRAM
  3. MEDROL [Suspect]
     Active Substance: METHYLPREDNISOLONE
     Indication: CROHN^S DISEASE
     Dosage: 8 MILLIGRAM, QD
     Route: 048
     Dates: start: 19950804, end: 20160425
  4. DUROGESIC [Concomitant]
     Active Substance: FENTANYL
     Indication: ANKYLOSING SPONDYLITIS
     Dosage: 25 MICROGRAM, TID
  5. VEDOLIZUMAB [Suspect]
     Active Substance: VEDOLIZUMAB
     Indication: CROHN^S DISEASE
     Dosage: 300 MILLIGRAM
     Route: 042
     Dates: start: 20100705
  6. ABATACEPT [Suspect]
     Active Substance: ABATACEPT
     Indication: CROHN^S DISEASE
     Dosage: UNK
     Route: 065
  7. INNOHEP [Concomitant]
     Active Substance: TINZAPARIN SODIUM
     Indication: DEEP VEIN THROMBOSIS
     Dosage: UNK UNK, QD
  8. REMICADE [Suspect]
     Active Substance: INFLIXIMAB
     Indication: CROHN^S DISEASE
     Dosage: 5 MILLIGRAM/KILOGRAM
     Route: 042
     Dates: start: 20000313, end: 20040115

REACTIONS (1)
  - Osteonecrosis of jaw [Recovered/Resolved]

NARRATIVE: CASE EVENT DATE: 20160304
